FAERS Safety Report 9268946 (Version 3)
Quarter: 2013Q3

REPORT INFORMATION
  Report Type: Spontaneous
  Country: US (occurrence: US)
  Receive Date: 20130503
  Receipt Date: 20130723
  Transmission Date: 20140515
  Serious: Yes (Hospitalization)
  Sender: FDA-Public Use
  Company Number: US-AMGEN-USASP2013029290

PATIENT
  Age: 65 Year
  Sex: Female
  Weight: 106.5 kg

DRUGS (8)
  1. PROLIA [Suspect]
     Indication: OSTEOPOROSIS POSTMENOPAUSAL
     Dosage: 60 MG, Q6MO
     Route: 058
     Dates: start: 20120927
  2. LEVOTHYROXINE [Concomitant]
  3. HYDROCHLOROTHIAZIDE [Concomitant]
     Dosage: 25 MG, QD
  4. LEXAPRO [Concomitant]
     Dosage: 10 MG, QMO
  5. CENTRUM SILVER                     /02363801/ [Concomitant]
  6. TYLENOL ARTHRITIS [Concomitant]
     Indication: PAIN
     Dosage: 4-5 TYLENOL ARTHRITIS/DAY
  7. BABY ASPIRIN [Concomitant]
     Dosage: 1 UNK, QD
  8. CALCIUM WITH VITAMIN D             /00944201/ [Concomitant]

REACTIONS (5)
  - Bladder prolapse [Recovered/Resolved]
  - Back pain [Recovered/Resolved]
  - Arthralgia [Not Recovered/Not Resolved]
  - Musculoskeletal pain [Unknown]
  - Myalgia [Unknown]
